FAERS Safety Report 5943784-3 (Version None)
Quarter: 2008Q4

REPORT INFORMATION
  Report Type: 
  Country: None (occurrence: None)
  Receive Date: 20081106
  Receipt Date: 20081029
  Transmission Date: 20090506
  Serious: Yes (Hospitalization, Disabling)
  Sender: FDA-Public Use
  Company Number: FR-PFIZER INC-2008091895

PATIENT
  Sex: Male
  Weight: 58 kg

DRUGS (10)
  1. MARAVIROC [Suspect]
     Indication: HIV INFECTION
     Dosage: TEXT:600 MG BID EVERY 12 HOURS TDD:1200 MG
     Route: 048
     Dates: start: 20080902
  2. RALTEGRAVIR [Suspect]
     Indication: HIV INFECTION
     Dosage: TEXT:400 MG BID EVERY 12 HOURS TDD:800 MG
     Route: 048
     Dates: start: 20080708
  3. ETRAVIRINE [Suspect]
     Indication: HIV INFECTION
     Dosage: TEXT:200 MG BID EVERY 12 HOURS TDD:400 MG
     Route: 048
     Dates: start: 20080902
  4. CLOPIDOGREL [Concomitant]
     Route: 048
     Dates: start: 20010625
  5. CITALOPRAM [Concomitant]
     Route: 048
     Dates: start: 20050429
  6. OMEPRAZOLE [Concomitant]
     Route: 048
     Dates: start: 20061128
  7. ZOPICLONE [Concomitant]
     Route: 048
     Dates: start: 20080111
  8. ALL OTHER THERAPEUTIC PRODUCTS [Concomitant]
     Route: 048
     Dates: start: 20080605
  9. ALL OTHER THERAPEUTIC PRODUCTS [Concomitant]
     Route: 048
     Dates: start: 20081013
  10. BROMAZEPAM [Concomitant]
     Route: 048
     Dates: start: 20080708

REACTIONS (5)
  - HYPOXIA [None]
  - LUNG DISORDER [None]
  - PYREXIA [None]
  - RENAL FAILURE [None]
  - THROMBOCYTOPENIA [None]
